FAERS Safety Report 4861946-3 (Version None)
Quarter: 2005Q4

REPORT INFORMATION
  Report Type: 
  Country: None (occurrence: None)
  Receive Date: 20051130
  Receipt Date: 20050720
  Transmission Date: 20060501
  Serious: Yes (Other)
  Sender: FDA-Public Use
  Company Number: PHEH2005US07871

PATIENT
  Age: 66 Year
  Sex: Female

DRUGS (5)
  1. LAMISIL [Suspect]
     Indication: NAIL TINEA
     Dosage: 250 MG, QD, ORAL
     Route: 048
     Dates: start: 20050201, end: 20050501
  2. ACTONEL [Concomitant]
  3. DETROL - SLOW RELEASE (TOLTERODINE L-TARTRATE) [Concomitant]
  4. KEFLEX [Concomitant]
  5. MEFLOQUINE [Concomitant]

REACTIONS (7)
  - ANOREXIA [None]
  - BACTERIAL INFECTION [None]
  - CHROMATURIA [None]
  - DYSGEUSIA [None]
  - KETOSIS [None]
  - THIRST [None]
  - WEIGHT DECREASED [None]
